FAERS Safety Report 5794613-2 (Version None)
Quarter: 2008Q2

REPORT INFORMATION
  Report Type: 
  Country: None (occurrence: None)
  Receive Date: 20080627
  Receipt Date: 20080627
  Transmission Date: 20081010
  Serious: Yes (Hospitalization)
  Sender: FDA-Public Use
  Company Number: None

PATIENT
  Sex: Male
  Weight: 104.3273 kg

DRUGS (6)
  1. ALEVE [Suspect]
     Indication: PAIN IN EXTREMITY
     Dosage: 4 TABS PO DAILY  PRIOR TO ADMISSION
     Route: 048
  2. ADVIL [Suspect]
     Indication: PAIN IN EXTREMITY
     Dosage: 2 TABS PO AT NIGHT PRIOR TO ADMISSION
     Route: 048
  3. M.V.I. [Concomitant]
  4. VITAMIN E [Concomitant]
  5. FISH OIL [Concomitant]
  6. ZANTAC [Concomitant]

REACTIONS (6)
  - DUODENAL ULCER [None]
  - GASTRITIS [None]
  - OESOPHAGITIS [None]
  - RECTAL HAEMORRHAGE [None]
  - REFUSAL OF TREATMENT BY PATIENT [None]
  - SYNCOPE [None]
